FAERS Safety Report 9417726 (Version 1)
Quarter: 2013Q3

REPORT INFORMATION
  Report Type: Spontaneous
  Country: US (occurrence: None)
  Receive Date: 20130722
  Receipt Date: 20130722
  Transmission Date: 20140515
  Serious: Yes (Hospitalization)
  Sender: FDA-Public Use
  Company Number: None

PATIENT
  Age: 71 Year
  Sex: Female
  Weight: 85.6 kg

DRUGS (2)
  1. CARBOPLATIN [Suspect]
  2. TAXOL [Suspect]
     Dosage: PACLITAXEL 175 MG/M2 IV AND CARBOPLATIN AUC 6 IV EVERY 3 WEEKS

REACTIONS (2)
  - Neutrophil count decreased [None]
  - White blood cell count decreased [None]
